FAERS Safety Report 4663569-8 (Version None)
Quarter: 2005Q2

REPORT INFORMATION
  Report Type: 
  Country: None (occurrence: None)
  Receive Date: 20050511
  Receipt Date: 20050228
  Transmission Date: 20051028
  Serious: Yes (Other)
  Sender: FDA-Public Use
  Company Number: 397205

PATIENT
  Age: 38 Year
  Sex: Male

DRUGS (2)
  1. PEGASYS [Suspect]
     Indication: HEPATITIS VIRAL
     Dates: end: 20040715
  2. COPEGUS [Suspect]
     Indication: HEPATITIS VIRAL
     Dates: end: 20040715

REACTIONS (1)
  - BLOOD BILIRUBIN INCREASED [None]
